FAERS Safety Report 25551167 (Version 1)
Quarter: 2025Q3

REPORT INFORMATION
  Report Type: Spontaneous
  Country: US (occurrence: US)
  Receive Date: 20250714
  Receipt Date: 20250714
  Transmission Date: 20251021
  Serious: No
  Sender: GC Biopharma
  Company Number: US-GC BIOPHARMA-US-2025-GCBP-00010

PATIENT
  Age: 65 Year
  Sex: Male
  Weight: 99 kg

DRUGS (23)
  1. ALYGLO [Suspect]
     Active Substance: HUMAN IMMUNOGLOBULIN G-STWK
     Indication: Chronic inflammatory demyelinating polyradiculoneuropathy
     Route: 042
     Dates: start: 20250508, end: 20250508
  2. CYTOMEL [Concomitant]
     Active Substance: LIOTHYRONINE SODIUM
     Indication: Product used for unknown indication
     Route: 048
     Dates: start: 20250501
  3. HYDROXYCHLOROQUINE SULFATE [Concomitant]
     Active Substance: HYDROXYCHLOROQUINE SULFATE
     Indication: Sjogren^s syndrome
     Route: 048
     Dates: start: 20250428
  4. MYCOPHENOLATE MOFETIL [Concomitant]
     Active Substance: MYCOPHENOLATE MOFETIL
     Indication: Product used for unknown indication
     Route: 048
     Dates: start: 20250407
  5. MONTELUKAST SODIUM [Concomitant]
     Active Substance: MONTELUKAST SODIUM
     Indication: Mast cell activation syndrome
     Route: 048
     Dates: start: 20250318
  6. PYRIDOSTIGMINE BROMIDE [Concomitant]
     Active Substance: PYRIDOSTIGMINE BROMIDE
     Indication: Product used for unknown indication
     Route: 048
     Dates: start: 20250304
  7. EPINEPHRINE [Concomitant]
     Active Substance: EPINEPHRINE
     Indication: Anaphylactic reaction
     Route: 065
     Dates: start: 20250217
  8. PROLASTIN [Concomitant]
     Active Substance: .ALPHA.1-PROTEINASE INHIBITOR HUMAN
     Indication: Product used for unknown indication
     Route: 042
     Dates: start: 20250130
  9. RUCONEST [Concomitant]
     Active Substance: CONESTAT ALFA
     Indication: Complement deficiency disease
     Route: 042
     Dates: start: 20241212
  10. LEVOTHYROXINE SODIUM [Concomitant]
     Active Substance: LEVOTHYROXINE SODIUM
     Indication: Product used for unknown indication
     Route: 048
     Dates: start: 20240612
  11. GAMMAGARD [Concomitant]
     Active Substance: HUMAN IMMUNOGLOBULIN G
     Indication: Product used for unknown indication
     Route: 042
     Dates: start: 20231228
  12. CASTOR OIL [Concomitant]
     Active Substance: CASTOR OIL
     Indication: Product used for unknown indication
     Route: 065
     Dates: start: 20231218
  13. VITAMIN D3 [Concomitant]
     Active Substance: CHOLECALCIFEROL
     Indication: Product used for unknown indication
     Route: 048
     Dates: start: 20231218
  14. MYCOPHENOLATE MOFETIL [Concomitant]
     Active Substance: MYCOPHENOLATE MOFETIL
     Indication: Product used for unknown indication
     Route: 065
     Dates: start: 20230801
  15. DIAZEPAM [Concomitant]
     Active Substance: DIAZEPAM
     Indication: Pain
     Route: 048
     Dates: start: 20220218
  16. CARBAMAZEPINE [Concomitant]
     Active Substance: CARBAMAZEPINE
     Indication: Pain
     Route: 048
     Dates: start: 20210909
  17. TIZANIDINE HYDROCHLORIDE [Concomitant]
     Active Substance: TIZANIDINE HYDROCHLORIDE
     Indication: Pain
     Route: 048
     Dates: start: 20210909
  18. PEPCID AC [Concomitant]
     Active Substance: FAMOTIDINE
     Indication: Product used for unknown indication
     Route: 048
     Dates: start: 20210819
  19. TUMS CHEWIES [Concomitant]
     Indication: Product used for unknown indication
     Route: 048
     Dates: start: 20210610
  20. CALCIUM WITH D3 [Concomitant]
     Indication: Product used for unknown indication
     Dosage: UNK, QD 0 DAYS, 0
     Route: 048
     Dates: start: 20210610
  21. ALLEGRA [BILASTINE] [Concomitant]
     Indication: Product used for unknown indication
     Route: 048
     Dates: start: 20180911
  22. ATORVASTATIN CALCIUM [Concomitant]
     Active Substance: ATORVASTATIN CALCIUM
     Indication: Product used for unknown indication
     Route: 048
     Dates: start: 20160119
  23. ATENOLOL [Concomitant]
     Active Substance: ATENOLOL
     Indication: Product used for unknown indication
     Dosage: UNK, QD 0 DAYS, 0
     Route: 048
     Dates: start: 20160119

REACTIONS (4)
  - Bone pain [Recovered/Resolved]
  - Back pain [Recovered/Resolved]
  - Arthralgia [Recovered/Resolved]
  - Off label use [Recovered/Resolved]

NARRATIVE: CASE EVENT DATE: 20250508
